FAERS Safety Report 15186616 (Version 1)
Quarter: 2018Q3

REPORT INFORMATION
  Report Type: Report from Study
  Country: US (occurrence: US)
  Receive Date: 20180723
  Receipt Date: 20180723
  Transmission Date: 20181010
  Serious: Yes (Death)
  Sender: FDA-Public Use
  Company Number: US-EXELIXIS-CABO-17010134

PATIENT
  Age: 82 Year
  Sex: Male

DRUGS (11)
  1. MOVANTIK [Concomitant]
     Active Substance: NALOXEGOL OXALATE
  2. OXYCODONE [Concomitant]
     Active Substance: OXYCODONE
  3. PEPCID [Concomitant]
     Active Substance: FAMOTIDINE
  4. POTASSIUM [Concomitant]
     Active Substance: POTASSIUM
  5. ONDANSETRON [Concomitant]
     Active Substance: ONDANSETRON
  6. COMETRIQ [Suspect]
     Active Substance: CABOZANTINIB S-MALATE
     Indication: PROSTATE CANCER
     Dosage: 40 MG, QOD
     Route: 048
     Dates: start: 20160721
  7. MEGACE [Concomitant]
     Active Substance: MEGESTROL ACETATE
  8. COMETRIQ [Suspect]
     Active Substance: CABOZANTINIB S-MALATE
     Dosage: 40 MG, QD
     Route: 048
     Dates: end: 20171004
  9. OPDIVO [Concomitant]
     Active Substance: NIVOLUMAB
  10. LEVOTHYROXINE. [Concomitant]
     Active Substance: LEVOTHYROXINE
  11. XARELTO [Concomitant]
     Active Substance: RIVAROXABAN

REACTIONS (4)
  - Off label use [Unknown]
  - Death [Fatal]
  - Drug ineffective for unapproved indication [Unknown]
  - Malignant neoplasm progression [Unknown]

NARRATIVE: CASE EVENT DATE: 20171215
